FAERS Safety Report 8105391-6 (Version None)
Quarter: 2012Q1

REPORT INFORMATION
  Report Type: 
  Country: None (occurrence: None)
  Receive Date: 20120201
  Receipt Date: 20120127
  Transmission Date: 20120608
  Serious: Yes (Hospitalization, Other)
  Sender: FDA-Public Use
  Company Number: ES-BAYER-201022638GPV

PATIENT
  Age: 72 Year
  Sex: Male
  Weight: 76 kg

DRUGS (5)
  1. NOVOMIX [INSULIN ASPART] [Concomitant]
     Indication: TYPE 2 DIABETES MELLITUS
     Dosage: 12 U (DAILY DOSE), , INTRAMUSCULAR
     Route: 030
     Dates: start: 20020101
  2. ENEBREL [Concomitant]
     Indication: PSORIASIS
     Dosage: 7.14 MG (DAILY DOSE), , ORAL
     Route: 048
     Dates: start: 20020101
  3. SORAFENIB (RAF KINASE INHIBITOR) [Suspect]
     Indication: HEPATIC NEOPLASM MALIGNANT
     Route: 048
     Dates: start: 20100120, end: 20100309
  4. ATARAX [Concomitant]
     Indication: PSORIASIS
     Dosage: 50 MG (DAILY DOSE), , ORAL
     Route: 048
     Dates: start: 20020101
  5. ACETAMINOPHEN [Concomitant]
     Indication: PAIN
     Route: 048
     Dates: start: 20020101

REACTIONS (2)
  - ENCEPHALOPATHY [None]
  - BRONCHITIS [None]
